FAERS Safety Report 9094469 (Version 1)
Quarter: 2013Q1

REPORT INFORMATION
  Report Type: Report from Study
  Country: CA (occurrence: US)
  Receive Date: 20130218
  Receipt Date: 20130218
  Transmission Date: 20140127
  Serious: Yes (Hospitalization)
  Sender: FDA-Public Use
  Company Number: CA-ROCHE-1191888

PATIENT
  Sex: Female
  Weight: 70 kg

DRUGS (12)
  1. ACTEMRA [Suspect]
     Indication: RHEUMATOID ARTHRITIS
     Route: 042
     Dates: start: 20120523
  2. ACTEMRA [Suspect]
     Route: 042
     Dates: start: 20121024
  3. AMBRISENTAN [Concomitant]
  4. WARFARIN [Concomitant]
     Route: 065
  5. DILTIAZEM [Concomitant]
     Route: 065
  6. LASIX [Concomitant]
     Route: 065
  7. PANTOLOC [Concomitant]
     Route: 065
  8. TYLENOL #3 (CANADA) [Concomitant]
     Route: 065
  9. PRAVASTATIN SODIUM [Concomitant]
     Route: 065
  10. CIPRALEX [Concomitant]
     Route: 065
  11. ONDANSETRON [Concomitant]
     Route: 065
  12. TRAZODONE [Concomitant]
     Route: 065

REACTIONS (2)
  - Hip fracture [Unknown]
  - Weight increased [Not Recovered/Not Resolved]
